FAERS Safety Report 19103495 (Version 3)
Quarter: 2021Q2

REPORT INFORMATION
  Report Type: Spontaneous
  Country: DE (occurrence: DE)
  Receive Date: 20210407
  Receipt Date: 20210427
  Transmission Date: 20210717
  Serious: No
  Sender: FDA-Public Use
  Company Number: DE-GW PHARMA-202103DEGW01400

PATIENT

DRUGS (2)
  1. EPIDYOLEX [Suspect]
     Active Substance: CANNABIDIOL
     Indication: PRODUCT USED FOR UNKNOWN INDICATION
     Dosage: UNKNOWN DOSE (HIGHER DOSE)
     Route: 048
     Dates: start: 202010
  2. EPIDYOLEX [Suspect]
     Active Substance: CANNABIDIOL
     Dosage: 1000 MILLIGRAM, QD (FOR 10 DAYS) (DOSE REDUCED)
     Route: 048

REACTIONS (3)
  - Diarrhoea [Recovering/Resolving]
  - Poor quality product administered [Unknown]
  - Liquid product physical issue [Unknown]
